FAERS Safety Report 20232544 (Version 1)
Quarter: 2021Q4

REPORT INFORMATION
  Report Type: Spontaneous
  Country: US (occurrence: None)
  Receive Date: 20211223
  Receipt Date: 20211223
  Transmission Date: 20220303
  Serious: No
  Sender: FDA-Public Use
  Company Number: None

PATIENT
  Age: 26 Year
  Sex: Male

DRUGS (2)
  1. SUTENT [Suspect]
     Active Substance: SUNITINIB MALATE
  2. REMERON [Suspect]
     Active Substance: MIRTAZAPINE

REACTIONS (2)
  - Drug interaction [None]
  - Neoplasm malignant [None]

NARRATIVE: CASE EVENT DATE: 20211223
